FAERS Safety Report 8559667 (Version 3)
Quarter: 2012Q4

REPORT INFORMATION
  Report Type: 
  Country: US (occurrence: US)
  Receive Date: 20120514
  Receipt Date: 20121219
  Transmission Date: 20130627
  Serious: Yes (Hospitalization)
  Sender: FDA-Public Use
  Company Number: US-BAYER-2012-042976

PATIENT
  Age: 44 Year
  Sex: Female
  Weight: 72.56 kg

DRUGS (15)
  1. OCELLA [Suspect]
     Indication: HOT FLASHES
     Dosage: UNK
     Dates: start: 20100319, end: 20100409
  2. YASMIN [Suspect]
  3. TEGRETOL [Concomitant]
     Indication: DEPRESSION
     Dosage: 400 mg, UNK
     Dates: start: 2008
  4. TEGRETOL [Concomitant]
     Indication: DEPRESSION
     Dosage: 100 mg b.i.d
  5. SYNTHROID [Concomitant]
     Indication: HYPOTHYROIDISM
     Dosage: 75 mg, UNK
     Dates: start: 2005
  6. SYNTHROID [Concomitant]
     Indication: HYPOTHYROIDISM
     Dosage: 25 mcg daily
  7. WELLBUTRIN XL [Concomitant]
     Indication: DEPRESSION
     Dosage: 300 mg, UNK
     Dates: start: 2009
  8. WELLBUTRIN XL [Concomitant]
     Indication: DEPRESSION
     Dosage: 150 mg a.m (interpreted as morning). in addition to 300 mg a.m.
  9. MULTIVITAMIN [Concomitant]
     Route: 048
  10. TRAZODONE [Concomitant]
     Dosage: 50 mg, UNK
     Route: 048
     Dates: start: 20100316
  11. ZOCOR [Concomitant]
     Indication: DYSLIPIDEMIA
  12. TESSALON [Concomitant]
  13. PERLES [Concomitant]
  14. LASIX [Concomitant]
     Indication: EFFUSION PLEURAL
     Dosage: 40 mg, q a.m.
  15. KLOR-CON [Concomitant]
     Dosage: 20 mEq, q a.m

REACTIONS (8)
  - Pulmonary embolism [Recovered/Resolved]
  - Injury [None]
  - Pain [None]
  - Chest pain [Recovered/Resolved]
  - Dyspnoea [Recovered/Resolved]
  - Fatigue [Recovered/Resolved]
  - Pleural effusion [Recovered/Resolved]
  - Off label use [None]
